FAERS Safety Report 4599427-7 (Version None)
Quarter: 2005Q1

REPORT INFORMATION
  Report Type: 
  Country: None (occurrence: None)
  Receive Date: 20050127
  Receipt Date: 20041014
  Transmission Date: 20050727
  Serious: No
  Sender: FDA-Public Use
  Company Number: USA041081110

PATIENT
  Age: 8 Year
  Sex: Male
  Weight: 37 kg

DRUGS (1)
  1. STRATTERA [Suspect]
     Indication: ATTENTION DEFICIT/HYPERACTIVITY DISORDER
     Dosage: 25 MG DAY
     Dates: start: 20030401

REACTIONS (5)
  - ANOREXIA [None]
  - DRUG EFFECT DECREASED [None]
  - HUNGER [None]
  - HYPERSOMNIA [None]
  - PSYCHOMOTOR HYPERACTIVITY [None]
